FAERS Safety Report 6886729-4 (Version None)
Quarter: 2010Q3

REPORT INFORMATION
  Report Type: 
  Country: None (occurrence: None)
  Receive Date: 20100730
  Receipt Date: 20100722
  Transmission Date: 20110219
  Serious: No
  Sender: FDA-Public Use
  Company Number: 2009BI009202

PATIENT
  Age: 43 Year
  Sex: Female

DRUGS (3)
  1. TYSABRI [Suspect]
     Indication: MULTIPLE SCLEROSIS
     Route: 042
     Dates: start: 20080404, end: 20090122
  2. TYSABRI [Suspect]
     Route: 042
     Dates: start: 20090917
  3. AVONEX [Concomitant]
     Route: 030

REACTIONS (7)
  - ASTHENIA [None]
  - CHEST PAIN [None]
  - DYSGEUSIA [None]
  - HYPERSENSITIVITY [None]
  - NASOPHARYNGITIS [None]
  - PAROSMIA [None]
  - URINE BILIRUBIN INCREASED [None]
